FAERS Safety Report 6546572-2 (Version None)
Quarter: 2010Q1

REPORT INFORMATION
  Report Type: 
  Country: None (occurrence: None)
  Receive Date: 20100119
  Receipt Date: 20100104
  Transmission Date: 20100710
  Serious: Yes (Hospitalization)
  Sender: FDA-Public Use
  Company Number: 2009003607

PATIENT
  Age: 61 Year
  Sex: Female
  Weight: 85.7 kg

DRUGS (10)
  1. ERLOTINIB HYDROCHLORIDE [Suspect]
     Indication: NON-SMALL CELL LUNG CANCER
     Dosage: (150 MG,QD),ORAL
     Route: 048
     Dates: start: 20090915, end: 20091030
  2. PACLITAXEL [Suspect]
     Indication: NON-SMALL CELL LUNG CANCER
     Dosage: INTRAVENOUS
     Route: 042
     Dates: end: 20091030
  3. CARBOPLATIN [Suspect]
     Indication: NON-SMALL CELL LUNG CANCER
     Dosage: INTRAVENOUS
     Route: 042
     Dates: end: 20091030
  4. XYLOXYLIN [Concomitant]
  5. ASPIRIN [Concomitant]
  6. CATAFLAM [Concomitant]
  7. HYDROCHLOROTHIAZIDE [Concomitant]
  8. IMODIUM [Concomitant]
  9. METOPROLOL (METOPROLOL) [Concomitant]
  10. PROPYLTHIOURACIL [Concomitant]

REACTIONS (14)
  - DYSPHAGIA [None]
  - EPISTAXIS [None]
  - HAEMATOCRIT DECREASED [None]
  - HAEMOGLOBIN DECREASED [None]
  - HAEMOPTYSIS [None]
  - HYPERHIDROSIS [None]
  - HYPOTENSION [None]
  - NEUTROPENIA [None]
  - OESOPHAGITIS [None]
  - PYREXIA [None]
  - RADIATION SKIN INJURY [None]
  - RED BLOOD CELL COUNT DECREASED [None]
  - TACHYCARDIA [None]
  - WHITE BLOOD CELL COUNT DECREASED [None]
